FAERS Safety Report 10099500 (Version 3)
Quarter: 2014Q2

REPORT INFORMATION
  Report Type: Report from Study
  Country: AT (occurrence: AT)
  Receive Date: 20140423
  Receipt Date: 20140626
  Transmission Date: 20141212
  Serious: Yes (Hospitalization)
  Sender: FDA-Public Use
  Company Number: AT-ALEXION PHARMACEUTICALS INC.-A201401353

PATIENT
  Sex: 0

DRUGS (1)
  1. ECULIZUMAB [Suspect]
     Indication: HAEMOLYTIC URAEMIC SYNDROME
     Route: 042

REACTIONS (1)
  - Haemorrhage [Recovered/Resolved]
